FAERS Safety Report 4901509-4 (Version None)
Quarter: 2006Q1

REPORT INFORMATION
  Report Type: 
  Country: None (occurrence: None)
  Receive Date: 20060201
  Receipt Date: 20060201
  Transmission Date: 20060701
  Serious: Yes (Hospitalization)
  Sender: FDA-Public Use
  Company Number: None

PATIENT
  Sex: Male
  Weight: 74.3899 kg

DRUGS (5)
  1. PHENYTOIN [Suspect]
     Indication: CONVULSION
     Dosage: 100 MG PO TID
     Route: 048
     Dates: start: 20050601
  2. HUMULIN N [Concomitant]
  3. OMEPRAZOLE [Concomitant]
  4. SIMVASTATIN [Concomitant]
  5. COUMADIN [Concomitant]

REACTIONS (3)
  - ANTICONVULSANT DRUG LEVEL INCREASED [None]
  - SYNCOPE [None]
  - TREMOR [None]
